FAERS Safety Report 20209203 (Version 1)
Quarter: 2021Q4

REPORT INFORMATION
  Report Type: Spontaneous
  Country: US (occurrence: None)
  Receive Date: 20211220
  Receipt Date: 20211220
  Transmission Date: 20220303
  Serious: No
  Sender: FDA-Public Use
  Company Number: 2021A824754

PATIENT
  Age: 20294 Day
  Weight: 73.5 kg

DRUGS (7)
  1. CRESTOR [Suspect]
     Active Substance: ROSUVASTATIN CALCIUM
     Indication: Blood cholesterol increased
     Route: 048
     Dates: start: 202108, end: 20211119
  2. VITAMIN C [Concomitant]
     Active Substance: ASCORBIC ACID
  3. VITAMIN D NOS [Concomitant]
     Active Substance: VITAMIN D NOS
  4. PSYLLUM HUSK [Concomitant]
  5. HERBALS [Concomitant]
     Active Substance: HERBALS
  6. VITAMIN B6 [Concomitant]
     Active Substance: PYRIDOXINE HYDROCHLORIDE
  7. VITAMIN B12 [Concomitant]
     Active Substance: CYANOCOBALAMIN

REACTIONS (8)
  - Hot flush [Recovered/Resolved]
  - Tremor [Recovered/Resolved]
  - Peripheral coldness [Recovered/Resolved]
  - Bowel movement irregularity [Recovered/Resolved]
  - Balance disorder [Recovered/Resolved]
  - Vertigo [Recovered/Resolved]
  - Anxiety [Unknown]
  - Dizziness [Recovered/Resolved]

NARRATIVE: CASE EVENT DATE: 20211109
